FAERS Safety Report 4432607-X (Version None)
Quarter: 2004Q3

REPORT INFORMATION
  Report Type: 
  Country: None (occurrence: None)
  Receive Date: 20040820
  Receipt Date: 20040806
  Transmission Date: 20050211
  Serious: Yes (Other)
  Sender: FDA-Public Use
  Company Number: 2004053679

PATIENT
  Age: 58 Year
  Sex: Male
  Weight: 73.4827 kg

DRUGS (1)
  1. LIPITOR [Suspect]
     Indication: BLOOD CHOLESTEROL INCREASED
     Dosage: 10 MG (10 MG, 1 IN 1 D), ORAL
     Route: 048

REACTIONS (4)
  - BACTERIAL INFECTION [None]
  - PROSTATE INFECTION [None]
  - RED BLOOD CELLS SEMEN [None]
  - THERAPY NON-RESPONDER [None]
